FAERS Safety Report 14986951 (Version 1)
Quarter: 2018Q2

REPORT INFORMATION
  Report Type: Report from Study
  Country: US (occurrence: US)
  Receive Date: 20180608
  Receipt Date: 20180608
  Transmission Date: 20180711
  Serious: No
  Sender: FDA-Public Use
  Company Number: US-AMGEN-USASP2018075283

PATIENT
  Age: 62 Year
  Sex: Female

DRUGS (2)
  1. ENBREL [Suspect]
     Active Substance: ETANERCEPT
     Indication: ANKYLOSING SPONDYLITIS
  2. ENBREL [Suspect]
     Active Substance: ETANERCEPT
     Indication: RHEUMATOID ARTHRITIS
     Dosage: 50 MG, QWK
     Route: 065
     Dates: start: 20180530, end: 20180604

REACTIONS (6)
  - Papule [Unknown]
  - Nasopharyngitis [Unknown]
  - Neuralgia [Unknown]
  - Injection site pain [Unknown]
  - Injection site erythema [Unknown]
  - Erythema [Unknown]

NARRATIVE: CASE EVENT DATE: 20180530
